FAERS Safety Report 12407181 (Version 1)
Quarter: 2016Q2

REPORT INFORMATION
  Report Type: Spontaneous
  Country: BR (occurrence: BR)
  Receive Date: 20160526
  Receipt Date: 20160526
  Transmission Date: 20160815
  Serious: Yes (Other)
  Sender: FDA-Public Use
  Company Number: PHHY2016BR070784

PATIENT
  Sex: Female
  Weight: 90 kg

DRUGS (2)
  1. LISINOVIL [Suspect]
     Active Substance: LISINOPRIL
     Indication: ATRIAL PRESSURE
     Dosage: 20 MG, BID
     Route: 065
     Dates: start: 2008
  2. HYDROCHLOROTHIAZIDE. [Concomitant]
     Active Substance: HYDROCHLOROTHIAZIDE
     Indication: HYPERTENSION
     Dosage: 25 MG, QD
     Route: 065

REACTIONS (1)
  - Drug dependence [Unknown]
